FAERS Safety Report 12592185 (Version 1)
Quarter: 2016Q3

REPORT INFORMATION
  Report Type: Spontaneous
  Country: US (occurrence: US)
  Receive Date: 20160726
  Receipt Date: 20160726
  Transmission Date: 20161109
  Serious: No
  Sender: FDA-Public Use
  Company Number: US-BAYER-2016-144664

PATIENT
  Age: 25 Year
  Sex: Male
  Weight: 73.47 kg

DRUGS (2)
  1. ALEVE [Suspect]
     Active Substance: NAPROXEN SODIUM
     Indication: TOOTHACHE
     Dosage: 2 DF, UNK
     Route: 048
     Dates: start: 201607, end: 20160724
  2. ALEVE [Suspect]
     Active Substance: NAPROXEN SODIUM
     Indication: BACK PAIN
     Dosage: 2 DF, EVERY 3 HOURS UNTIL HAD TAKEN 15 CAPLETS
     Route: 048
     Dates: start: 20160724, end: 20160724

REACTIONS (2)
  - Drug ineffective [None]
  - Product use issue [None]
